FAERS Safety Report 10307481 (Version 1)
Quarter: 2014Q3

REPORT INFORMATION
  Report Type: Spontaneous
  Country: US (occurrence: None)
  Receive Date: 20140714
  Receipt Date: 20140714
  Transmission Date: 20150326
  Serious: Yes (Disabling)
  Sender: FDA-Public Use
  Company Number: None

PATIENT
  Age: 26 Year
  Sex: Female
  Weight: 86.18 kg

DRUGS (1)
  1. LUTERA [Suspect]
     Active Substance: ETHINYL ESTRADIOL\LEVONORGESTREL
     Indication: CONTRACEPTION
     Dosage: 1 PILL ONCE DAILY BY MOUTH
     Route: 048

REACTIONS (8)
  - Depression [None]
  - Feeling abnormal [None]
  - Insomnia [None]
  - Anger [None]
  - Anxiety [None]
  - Mood swings [None]
  - Irritability [None]
  - Crying [None]

NARRATIVE: CASE EVENT DATE: 20140701
